FAERS Safety Report 8437088-7 (Version None)
Quarter: 2012Q2

REPORT INFORMATION
  Report Type: 
  Country: None (occurrence: None)
  Receive Date: 20120614
  Receipt Date: 20120607
  Transmission Date: 20120825
  Serious: Yes (Other)
  Sender: FDA-Public Use
  Company Number: MX-JNJFOC-20120605094

PATIENT
  Sex: Female
  Weight: 73 kg

DRUGS (2)
  1. NICORETTE [Suspect]
     Dosage: MORE THAN 3 GUMS PER DAY
     Route: 048
     Dates: end: 20120101
  2. NICORETTE [Suspect]
     Indication: SMOKING CESSATION THERAPY
     Dosage: ONE GUM OF PER DAY
     Route: 048
     Dates: start: 20070601

REACTIONS (4)
  - DISCOMFORT [None]
  - WRONG TECHNIQUE IN DRUG USAGE PROCESS [None]
  - INCORRECT DRUG ADMINISTRATION DURATION [None]
  - NICOTINE DEPENDENCE [None]
